FAERS Safety Report 4832559-4 (Version None)
Quarter: 2005Q4

REPORT INFORMATION
  Report Type: 
  Country: None (occurrence: None)
  Receive Date: 20051117
  Receipt Date: 20051104
  Transmission Date: 20060501
  Serious: Yes (Other)
  Sender: FDA-Public Use
  Company Number: 2005141072

PATIENT
  Age: 45 Year
  Sex: Female
  Weight: 63.5036 kg

DRUGS (5)
  1. BENGAY ULTRA STRENGTH PATCH (MENTHOL) [Suspect]
     Indication: BACK PAIN
     Dosage: 1 PATCH FOR 2 DAYS, TOPICAL
     Route: 061
     Dates: start: 20050828, end: 20050829
  2. PARACETAMOL (PARACETAMOL) [Concomitant]
  3. IBUPROFEN [Concomitant]
  4. CYCLOBENZAPRINE HYDROCHLORIDE [Concomitant]
  5. INDOMETHACIN [Concomitant]

REACTIONS (3)
  - APPLICATION SITE BURN [None]
  - BURNS SECOND DEGREE [None]
  - SCAR [None]
